FAERS Safety Report 18555600 (Version 1)
Quarter: 2020Q4

REPORT INFORMATION
  Report Type: Report from Study
  Country: US (occurrence: US)
  Receive Date: 20201127
  Receipt Date: 20201127
  Transmission Date: 20210114
  Serious: Yes (Hospitalization, Other)
  Sender: FDA-Public Use
  Company Number: US-SHIRE-US202021918

PATIENT
  Sex: Female

DRUGS (1)
  1. HUMAN IMMUNOGLOBULIN; HYALURONIDASE [Suspect]
     Active Substance: HUMAN IMMUNOGLOBULIN G\HYALURONIDASE RECOMBINANT HUMAN
     Indication: IMMUNODEFICIENCY COMMON VARIABLE
     Dosage: UNK UNK, UNKNOWN
     Route: 065

REACTIONS (9)
  - Diabetes mellitus [Unknown]
  - Joint injury [Unknown]
  - Visual impairment [Unknown]
  - Fall [Unknown]
  - Dysphonia [Unknown]
  - Atrial fibrillation [Unknown]
  - Contusion [Unknown]
  - Eye disorder [Unknown]
  - Head injury [Unknown]
